FAERS Safety Report 14994492 (Version 1)
Quarter: 2018Q2

REPORT INFORMATION
  Report Type: Other
  Country: IL (occurrence: IL)
  Receive Date: 20180611
  Receipt Date: 20180611
  Transmission Date: 20180711
  Serious: Yes (Hospitalization)
  Sender: FDA-Public Use
  Company Number: IL-TARO PHARMACEUTICALS USA.,INC-2018SUN00297

PATIENT
  Age: 66 Year
  Sex: Male

DRUGS (3)
  1. JANUET [Concomitant]
     Active Substance: METFORMIN HYDROCHLORIDE\SITAGLIPTIN PHOSPHATE
     Indication: PRODUCT USED FOR UNKNOWN INDICATION
     Dosage: UNK
     Route: 065
  2. COUMADIN [Suspect]
     Active Substance: WARFARIN SODIUM
     Indication: COAGULOPATHY
     Dosage: UNK
     Route: 048
  3. EXFORGE [Concomitant]
     Active Substance: AMLODIPINE BESYLATE\VALSARTAN
     Indication: PRODUCT USED FOR UNKNOWN INDICATION
     Dosage: UNK
     Route: 065

REACTIONS (4)
  - Fall [Unknown]
  - International normalised ratio increased [Unknown]
  - Subarachnoid haemorrhage [Unknown]
  - Contusion [Unknown]
